FAERS Safety Report 20838201 (Version 1)
Quarter: 2022Q2

REPORT INFORMATION
  Report Type: Spontaneous
  Country: US (occurrence: US)
  Receive Date: 20220517
  Receipt Date: 20220517
  Transmission Date: 20220721
  Serious: No
  Sender: FDA-Public Use
  Company Number: US-ALLERGAN-2211593US

PATIENT
  Age: 42 Year
  Sex: Female

DRUGS (1)
  1. KYBELLA [Suspect]
     Active Substance: DEOXYCHOLIC ACID
     Indication: Lipolysis procedure
     Dosage: UNK UNK, SINGLE
     Dates: start: 20211009, end: 20211009

REACTIONS (3)
  - Swelling face [Not Recovered/Not Resolved]
  - Rash [Unknown]
  - Injection site swelling [Not Recovered/Not Resolved]

NARRATIVE: CASE EVENT DATE: 20211009
